FAERS Safety Report 8791828 (Version 1)
Quarter: 2012Q4

REPORT INFORMATION
  Report Type: 
  Country: BE (occurrence: BE)
  Receive Date: 20120918
  Receipt Date: 20120918
  Transmission Date: 20130627
  Serious: Yes (Other)
  Sender: FDA-Public Use
  Company Number: BE-ELI_LILLY_AND_COMPANY-BE201209002424

PATIENT
  Sex: Female

DRUGS (2)
  1. ZYPREXA [Suspect]
  2. SERLAIN [Concomitant]

REACTIONS (1)
  - Neoplasm malignant [Unknown]
